FAERS Safety Report 4890944-9 (Version None)
Quarter: 2006Q1

REPORT INFORMATION
  Report Type: 
  Country: None (occurrence: None)
  Receive Date: 20060123
  Receipt Date: 20060110
  Transmission Date: 20060701
  Serious: Yes (Other)
  Sender: FDA-Public Use
  Company Number: HQWYE306812JAN06

PATIENT
  Age: 55 Year
  Sex: Female

DRUGS (1)
  1. PREMPHASE 14/14 [Suspect]
     Dosage: ORAL; SEVERAL YEARS
     Route: 048

REACTIONS (1)
  - THYROID GLAND CANCER [None]
